FAERS Safety Report 10055584 (Version 1)
Quarter: 2014Q2

REPORT INFORMATION
  Report Type: Spontaneous
  Country: US (occurrence: US)
  Receive Date: 20140403
  Receipt Date: 20140403
  Transmission Date: 20141212
  Serious: No
  Sender: FDA-Public Use
  Company Number: US-SHIRE-US201400993

PATIENT
  Age: 55 Year
  Sex: Female
  Weight: 61.22 kg

DRUGS (1)
  1. LIALDA [Suspect]
     Indication: COLITIS ULCERATIVE
     Dosage: 2.4 G (1.2 G, TWO TABLETS DAILY IN MORNING), 1X/DAY:QD
     Route: 048
     Dates: start: 2013

REACTIONS (2)
  - Red blood cell sedimentation rate increased [Not Recovered/Not Resolved]
  - Arthralgia [Not Recovered/Not Resolved]
